FAERS Safety Report 17910781 (Version 2)
Quarter: 2020Q4

REPORT INFORMATION
  Report Type: Spontaneous
  Country: US (occurrence: US)
  Receive Date: 20200618
  Receipt Date: 20201223
  Transmission Date: 20210113
  Serious: Yes (Hospitalization, Other)
  Sender: FDA-Public Use
  Company Number: US-ASTRAZENECA-2020SE75279

PATIENT
  Sex: Female
  Weight: 48.1 kg

DRUGS (45)
  1. ZOFRAN [Concomitant]
     Active Substance: ONDANSETRON HYDROCHLORIDE
  2. INDOMETHACIN. [Concomitant]
     Active Substance: INDOMETHACIN
  3. PREVACID [Suspect]
     Active Substance: LANSOPRAZOLE
     Indication: GASTROOESOPHAGEAL REFLUX DISEASE
     Route: 065
     Dates: start: 200206, end: 201706
  4. VENTOLIN [Concomitant]
     Active Substance: ALBUTEROL SULFATE
  5. HYDROCO/APAP [Concomitant]
     Active Substance: ACETAMINOPHEN\HYDROCODONE
  6. DIAZEPAM. [Concomitant]
     Active Substance: DIAZEPAM
  7. TRANSDERM [Concomitant]
  8. DULOXETINE. [Concomitant]
     Active Substance: DULOXETINE
  9. SKELAXIN [Concomitant]
     Active Substance: METAXALONE
  10. PREVACID [Suspect]
     Active Substance: LANSOPRAZOLE
     Indication: GASTROOESOPHAGEAL REFLUX DISEASE
     Route: 048
     Dates: start: 20030605
  11. PROMETHAZINE [Concomitant]
     Active Substance: PROMETHAZINE HYDROCHLORIDE
  12. FLUCONAZOLE. [Concomitant]
     Active Substance: FLUCONAZOLE
  13. COMBIGAN [Concomitant]
     Active Substance: BRIMONIDINE TARTRATE\TIMOLOL MALEATE
  14. REMERON [Concomitant]
     Active Substance: MIRTAZAPINE
  15. DEXILANT [Suspect]
     Active Substance: DEXLANSOPRAZOLE
     Indication: GASTROOESOPHAGEAL REFLUX DISEASE
     Route: 065
     Dates: start: 2016, end: 2017
  16. DEXILANT [Suspect]
     Active Substance: DEXLANSOPRAZOLE
     Indication: GASTROOESOPHAGEAL REFLUX DISEASE
     Route: 048
     Dates: start: 20170425
  17. PREVACID [Suspect]
     Active Substance: LANSOPRAZOLE
     Indication: GASTROOESOPHAGEAL REFLUX DISEASE
     Route: 065
     Dates: start: 2002, end: 2003
  18. PREDNISONE. [Concomitant]
     Active Substance: PREDNISONE
     Indication: CROHN^S DISEASE
     Dates: start: 2003, end: 2017
  19. ROPINIROLE. [Concomitant]
     Active Substance: ROPINIROLE
  20. MIRTAZAPINE. [Concomitant]
     Active Substance: MIRTAZAPINE
  21. ONDANSETRON [Concomitant]
     Active Substance: ONDANSETRON
     Indication: NAUSEA
     Dates: start: 2015, end: 2017
  22. TRAZODONE [Concomitant]
     Active Substance: TRAZODONE HYDROCHLORIDE
  23. LINEZOLID. [Concomitant]
     Active Substance: LINEZOLID
  24. METRONIDAZOL [Concomitant]
     Active Substance: METRONIDAZOLE
  25. CALCITRIOL. [Concomitant]
     Active Substance: CALCITRIOL
  26. TEMAZEPAM. [Concomitant]
     Active Substance: TEMAZEPAM
  27. ALBUTEROL. [Concomitant]
     Active Substance: ALBUTEROL
  28. BUTRANS [Concomitant]
     Active Substance: BUPRENORPHINE
  29. FAMOTIDINE. [Concomitant]
     Active Substance: FAMOTIDINE
  30. AMBIEN [Concomitant]
     Active Substance: ZOLPIDEM TARTRATE
  31. SANDOSTATIN [Concomitant]
     Active Substance: OCTREOTIDE ACETATE
  32. SINGULAIR [Concomitant]
     Active Substance: MONTELUKAST SODIUM
  33. SPIRONOLACTONE. [Concomitant]
     Active Substance: SPIRONOLACTONE
  34. DEXILANT [Suspect]
     Active Substance: DEXLANSOPRAZOLE
     Indication: GASTROOESOPHAGEAL REFLUX DISEASE
     Route: 048
     Dates: start: 20170522
  35. NEXIUM [Suspect]
     Active Substance: ESOMEPRAZOLE MAGNESIUM
     Route: 048
     Dates: start: 200206, end: 201706
  36. MONTELUKAST [Concomitant]
     Active Substance: MONTELUKAST SODIUM
     Indication: ASTHMA
     Dates: start: 2015
  37. HYDROXYCHLOR [Concomitant]
     Active Substance: HYDROXYCHLOROQUINE
  38. CIPROFLOXACIN. [Concomitant]
     Active Substance: CIPROFLOXACIN
  39. SMZ/TMP [Concomitant]
     Active Substance: SULFAMETHOXAZOLE\TRIMETHOPRIM
  40. IMIPRAMINE [Concomitant]
     Active Substance: IMIPRAMINE
  41. NITROFURAN [Concomitant]
     Active Substance: NITROFURANTOIN
  42. AZITHROMYCIN ANHYDROUS. [Concomitant]
     Active Substance: AZITHROMYCIN ANHYDROUS
  43. CEPHALEXIN. [Concomitant]
     Active Substance: CEPHALEXIN
  44. VIOXX [Concomitant]
     Active Substance: ROFECOXIB
  45. SPIRIVA [Concomitant]
     Active Substance: TIOTROPIUM BROMIDE MONOHYDRATE

REACTIONS (2)
  - Renal failure [Unknown]
  - Acute kidney injury [Recovered/Resolved]
